FAERS Safety Report 9276849 (Version 2)
Quarter: 2013Q2

REPORT INFORMATION
  Report Type: Spontaneous
  Country: US (occurrence: US)
  Receive Date: 20130507
  Receipt Date: 20130513
  Transmission Date: 20140414
  Serious: Yes (Hospitalization, Other)
  Sender: FDA-Public Use
  Company Number: US-BAXTER-2013BAX015830

PATIENT
  Age: 61 Year
  Sex: Female

DRUGS (4)
  1. DIANEAL LOW CALCIUM [Suspect]
     Indication: PERITONEAL DIALYSIS
     Route: 033
     Dates: start: 20120314
  2. DIANEAL LOW CALCIUM [Suspect]
     Route: 033
     Dates: start: 20130416
  3. EXTRANEAL [Suspect]
     Indication: PERITONEAL DIALYSIS
     Route: 033
     Dates: start: 20120314
  4. EXTRANEAL [Suspect]
     Route: 033
     Dates: start: 20130416

REACTIONS (3)
  - Chest pain [Recovered/Resolved]
  - Electrocardiogram ST segment elevation [Recovered/Resolved]
  - Cellulitis [Recovering/Resolving]
